FAERS Safety Report 4768014-X (Version None)
Quarter: 2005Q3

REPORT INFORMATION
  Report Type: 
  Country: None (occurrence: None)
  Receive Date: 20050913
  Receipt Date: 20050901
  Transmission Date: 20060218
  Serious: Yes (Other)
  Sender: FDA-Public Use
  Company Number: 2005123383

PATIENT
  Age: 74 Year
  Sex: Female
  Weight: 53.5244 kg

DRUGS (3)
  1. ZOLOFT [Suspect]
     Indication: DEPRESSION
     Dosage: 50 MG (50 MG, 1 IN 1 D)
     Dates: start: 20040101
  2. ATENOLOL [Concomitant]
  3. TIAZAC [Concomitant]

REACTIONS (14)
  - ASTHMA [None]
  - BRONCHITIS [None]
  - CATARACT [None]
  - CONDITION AGGRAVATED [None]
  - CRYING [None]
  - DEPRESSION [None]
  - EMOTIONAL DISTRESS [None]
  - HERNIA [None]
  - HERPES ZOSTER [None]
  - HYPOAESTHESIA [None]
  - INFLUENZA [None]
  - NERVOUSNESS [None]
  - OBSESSIVE RUMINATION [None]
  - RENAL ANEURYSM [None]
